FAERS Safety Report 25687545 (Version 1)
Quarter: 2025Q3

REPORT INFORMATION
  Report Type: Spontaneous
  Country: US (occurrence: US)
  Receive Date: 20250817
  Receipt Date: 20250817
  Transmission Date: 20251020
  Serious: Yes (Other)
  Sender: AUROBINDO
  Company Number: US-AUROBINDO-AUR-APL-2025-040900

PATIENT
  Age: 75 Year
  Sex: Female

DRUGS (3)
  1. DAPTOMYCIN [Suspect]
     Active Substance: DAPTOMYCIN
     Indication: Ulcer
     Route: 065
  2. CEFEPIME [Concomitant]
     Active Substance: CEFEPIME HYDROCHLORIDE
     Indication: Product used for unknown indication
     Route: 065
  3. VANCOMYCIN [Concomitant]
     Active Substance: VANCOMYCIN
     Indication: Product used for unknown indication
     Route: 065

REACTIONS (3)
  - Pyoderma gangrenosum [Recovering/Resolving]
  - Eosinophilic pneumonia acute [Recovering/Resolving]
  - Drug ineffective [Unknown]
